FAERS Safety Report 4483516-1 (Version None)
Quarter: 2004Q4

REPORT INFORMATION
  Report Type: 
  Country: None (occurrence: None)
  Receive Date: 20041025
  Receipt Date: 20041013
  Transmission Date: 20050328
  Serious: Yes (Other)
  Sender: FDA-Public Use
  Company Number: US-JNJFOC-20040800595

PATIENT
  Sex: Female
  Weight: 83.01 kg

DRUGS (5)
  1. REMICADE [Suspect]
     Dosage: 300MG - 500 MG
     Route: 042
  2. REMICADE [Suspect]
     Indication: RHEUMATOID ARTHRITIS
     Route: 042
  3. MAXZIDE [Concomitant]
  4. MAXZIDE [Concomitant]
     Dosage: 50-75MG DAILY
  5. ATENOLOL [Concomitant]
     Indication: HYPERTENSION

REACTIONS (1)
  - BASAL CELL CARCINOMA [None]
